FAERS Safety Report 19162950 (Version 2)
Quarter: 2021Q2

REPORT INFORMATION
  Report Type: Spontaneous
  Country: US (occurrence: US)
  Receive Date: 20210421
  Receipt Date: 20210428
  Transmission Date: 20210717
  Serious: Yes (Hospitalization, Other)
  Sender: FDA-Public Use
  Company Number: US-ASTELLAS-2021US012528

PATIENT
  Age: 69 Year
  Sex: Male

DRUGS (3)
  1. PADCEV [Suspect]
     Active Substance: ENFORTUMAB VEDOTIN-EJFV
     Dosage: 125 MG, UNKNOWN FREQ., SECOND DOSE
     Route: 042
     Dates: start: 20210324
  2. PADCEV [Suspect]
     Active Substance: ENFORTUMAB VEDOTIN-EJFV
     Dosage: 125 MG, UNKNOWN FREQ., THIRD DOSE
     Route: 042
     Dates: start: 20210331
  3. PADCEV [Suspect]
     Active Substance: ENFORTUMAB VEDOTIN-EJFV
     Indication: PRODUCT USED FOR UNKNOWN INDICATION
     Dosage: 100 MG, UNKNOWN FREQ., FIRST DOSE
     Route: 042
     Dates: start: 20210317

REACTIONS (4)
  - Diabetic ketoacidosis [Not Recovered/Not Resolved]
  - Urinary tract infection [Unknown]
  - Insulin resistance [Not Recovered/Not Resolved]
  - Hyperglycaemia [Not Recovered/Not Resolved]

NARRATIVE: CASE EVENT DATE: 20210404
